FAERS Safety Report 5511489-9 (Version None)
Quarter: 2007Q4

REPORT INFORMATION
  Report Type: 
  Country: None (occurrence: None)
  Receive Date: 20071109
  Receipt Date: 20071106
  Transmission Date: 20080405
  Serious: Yes (Hospitalization)
  Sender: FDA-Public Use
  Company Number: A0691717A

PATIENT
  Age: 44 Year
  Sex: Female

DRUGS (7)
  1. ALTABAX [Suspect]
     Indication: STAPHYLOCOCCAL INFECTION
     Dosage: 1PCT TWICE PER DAY
     Route: 061
     Dates: start: 20071101, end: 20071101
  2. DEPAKOTE [Concomitant]
  3. NEURONTIN [Concomitant]
  4. ATARAX [Concomitant]
  5. ATIVAN [Concomitant]
  6. AMBIEN [Concomitant]
  7. BACTRIM [Concomitant]

REACTIONS (4)
  - APPLICATION SITE IRRITATION [None]
  - SKIN INFECTION [None]
  - SKIN LESION [None]
  - SWELLING [None]
